FAERS Safety Report 11150132 (Version 1)
Quarter: 2015Q2

REPORT INFORMATION
  Report Type: Spontaneous
  Country: MX (occurrence: MX)
  Receive Date: 20150529
  Receipt Date: 20150529
  Transmission Date: 20150821
  Serious: Yes (Other)
  Sender: FDA-Public Use
  Company Number: MX-ASTRAZENECA-2015SE45112

PATIENT
  Age: 57 Year
  Sex: Female

DRUGS (4)
  1. NEULASTIM [Concomitant]
     Active Substance: PEGFILGRASTIM
  2. FASLODEX [Suspect]
     Active Substance: FULVESTRANT
     Indication: BREAST CANCER RECURRENT
     Dosage: 500 MG, ONCE, UNKNOWN
     Route: 030
     Dates: start: 20150428
  3. FASLODEX [Suspect]
     Active Substance: FULVESTRANT
     Indication: BREAST CANCER
     Dosage: 500 MG, ONCE, UNKNOWN
     Route: 030
     Dates: start: 20150428
  4. LEVOTHYROXINE [Concomitant]
     Active Substance: LEVOTHYROXINE
     Indication: HYPOTHYROIDISM
     Route: 048

REACTIONS (2)
  - Fatigue [Recovered/Resolved]
  - Aphonia [Recovered/Resolved]

NARRATIVE: CASE EVENT DATE: 20150428
